FAERS Safety Report 13871168 (Version 1)
Quarter: 2017Q3

REPORT INFORMATION
  Report Type: Spontaneous
  Country: US (occurrence: US)
  Receive Date: 20170816
  Receipt Date: 20170816
  Transmission Date: 20171127
  Serious: No
  Sender: FDA-Public Use
  Company Number: US-BRISTOL-MYERS SQUIBB COMPANY-BMS-2017-072964

PATIENT
  Sex: Male
  Weight: 89.34 kg

DRUGS (1)
  1. YERVOY [Suspect]
     Active Substance: IPILIMUMAB
     Indication: MALIGNANT MELANOMA
     Dosage: 10 MG/KG, Q2WK
     Route: 042
     Dates: start: 20170620, end: 20170801

REACTIONS (2)
  - Rash [Unknown]
  - Off label use [Unknown]
